FAERS Safety Report 4374908-X (Version None)
Quarter: 2004Q2

REPORT INFORMATION
  Report Type: 
  Country: None (occurrence: None)
  Receive Date: 20040609
  Receipt Date: 20040407
  Transmission Date: 20050107
  Serious: Yes (Other)
  Sender: FDA-Public Use
  Company Number: PHFR2004GB01731

PATIENT
  Age: 61 Year
  Sex: Male

DRUGS (5)
  1. CLOZARIL [Suspect]
     Indication: SCHIZOPHRENIA
     Dosage: 550MG/DAY
     Route: 048
     Dates: start: 19990202
  2. VENLAFAXINE [Concomitant]
     Indication: DEPRESSION
     Dosage: 225MG/DAY
     Route: 048
     Dates: start: 20000901
  3. CLONAZEPAM [Concomitant]
     Dosage: 500 MG, BID
     Route: 048
     Dates: start: 20000901
  4. DOCUSATE SODIUM [Concomitant]
     Indication: CONSTIPATION
     Dosage: UNK, PRN
     Route: 065
  5. LACTULOSE [Concomitant]
     Indication: CONSTIPATION
     Dosage: UNK, PRN
     Route: 065

REACTIONS (4)
  - ANAEMIA [None]
  - HAEMATOCRIT DECREASED [None]
  - HAEMOGLOBIN DECREASED [None]
  - RED BLOOD CELL COUNT DECREASED [None]
